FAERS Safety Report 5153009-7 (Version None)
Quarter: 2006Q4

REPORT INFORMATION
  Report Type: 
  Country: None (occurrence: None)
  Receive Date: 20061117
  Receipt Date: 20060829
  Transmission Date: 20070319
  Serious: Yes (Other)
  Sender: FDA-Public Use
  Company Number: US-BAYER-200615299BWH

PATIENT
  Sex: Female

DRUGS (3)
  1. AVELOX [Suspect]
     Indication: SINUSITIS
     Route: 048
  2. ZITHROMAX [Suspect]
     Indication: SINUSITIS
  3. CYMBALTA [Concomitant]
     Route: 048

REACTIONS (17)
  - BALANCE DISORDER [None]
  - DIZZINESS [None]
  - EAR CONGESTION [None]
  - EAR DISCOMFORT [None]
  - HEAD DISCOMFORT [None]
  - HEADACHE [None]
  - HYPERAESTHESIA [None]
  - HYPOAESTHESIA ORAL [None]
  - NERVOUSNESS [None]
  - OTOTOXICITY [None]
  - PALPITATIONS [None]
  - PARAESTHESIA [None]
  - PHONOPHOBIA [None]
  - PHOTOPHOBIA [None]
  - SINUS HEADACHE [None]
  - TINNITUS [None]
  - TREMOR [None]
